FAERS Safety Report 20253998 (Version 3)
Quarter: 2022Q2

REPORT INFORMATION
  Report Type: Spontaneous
  Country: US (occurrence: US)
  Receive Date: 20211230
  Receipt Date: 20220420
  Transmission Date: 20220720
  Serious: Yes (Hospitalization, Other)
  Sender: FDA-Public Use
  Company Number: US-BoehringerIngelheim-2021-BI-146036

PATIENT
  Age: 71 Year
  Sex: Female

DRUGS (2)
  1. JARDIANCE [Suspect]
     Active Substance: EMPAGLIFLOZIN
     Indication: Diabetes mellitus
     Dates: start: 202105, end: 202108
  2. JARDIANCE [Suspect]
     Active Substance: EMPAGLIFLOZIN
     Indication: Cardiac disorder

REACTIONS (16)
  - Pelvic abscess [Not Recovered/Not Resolved]
  - Vaginal abscess [Not Recovered/Not Resolved]
  - Anal abscess [Not Recovered/Not Resolved]
  - Abscess [Recovered/Resolved]
  - Necrotising fasciitis [Unknown]
  - Gait inability [Unknown]
  - Dysstasia [Unknown]
  - Blood pressure decreased [Unknown]
  - Delirium [Unknown]
  - Blood glucose increased [Recovered/Resolved]
  - Acne [Unknown]
  - Decreased appetite [Unknown]
  - Nightmare [Not Recovered/Not Resolved]
  - Lethargy [Unknown]
  - Pyrexia [Unknown]
  - Swelling [Unknown]

NARRATIVE: CASE EVENT DATE: 20210501
